FAERS Safety Report 16090948 (Version 2)
Quarter: 2019Q3

REPORT INFORMATION
  Report Type: Report from Study
  Country: CO (occurrence: CO)
  Receive Date: 20190319
  Receipt Date: 20190724
  Transmission Date: 20191004
  Serious: Yes (Other)
  Sender: FDA-Public Use
  Company Number: PHHY2018CO105603

PATIENT
  Sex: Female

DRUGS (4)
  1. TASIGNA [Suspect]
     Active Substance: NILOTINIB
     Dosage: 400 MG, QD
     Route: 048
  2. TASIGNA [Suspect]
     Active Substance: NILOTINIB
     Dosage: 2 DF, QD (200 MG)
     Route: 065
  3. TASIGNA [Suspect]
     Active Substance: NILOTINIB
     Indication: CHRONIC MYELOID LEUKAEMIA
     Dosage: 800 MG, QD
     Route: 048
  4. TASIGNA [Suspect]
     Active Substance: NILOTINIB
     Dosage: 600 MG, QD
     Route: 048

REACTIONS (8)
  - Suicidal ideation [Unknown]
  - Ear pain [Unknown]
  - Platelet count decreased [Unknown]
  - Influenza [Unknown]
  - Hyperacusis [Unknown]
  - Cough [Unknown]
  - Influenza [Recovered/Resolved]
  - Inappropriate schedule of product administration [Unknown]
